FAERS Safety Report 10417928 (Version 1)
Quarter: 2014Q3

REPORT INFORMATION
  Report Type: Spontaneous
  Country: US (occurrence: US)
  Receive Date: 20140829
  Receipt Date: 20140829
  Transmission Date: 20150326
  Serious: No
  Sender: FDA-Public Use
  Company Number: US-MYLAN-2014S1013481

PATIENT
  Age: 54 Year
  Sex: Male

DRUGS (2)
  1. DIPHENHYDRAMINE HYDROCHLORIDE INJECTION USP 50 MG/ML [Suspect]
     Active Substance: DIPHENHYDRAMINE HYDROCHLORIDE
     Indication: LYMPHOMA
     Dosage: 500 MG,ONCE
     Route: 042
     Dates: start: 20140407, end: 20140407
  2. DIPHENHYDRAMINE HYDROCHLORIDE INJECTION USP 50 MG/ML [Suspect]
     Active Substance: DIPHENHYDRAMINE HYDROCHLORIDE
     Indication: OFF LABEL USE
     Dosage: 500 MG,ONCE
     Route: 042
     Dates: start: 20140505, end: 20140505

REACTIONS (1)
  - Burning sensation [Recovered/Resolved]

NARRATIVE: CASE EVENT DATE: 20140407
